FAERS Safety Report 16741627 (Version 3)
Quarter: 2019Q4

REPORT INFORMATION
  Report Type: Report from Study
  Country: CA (occurrence: CA)
  Receive Date: 20190826
  Receipt Date: 20191028
  Transmission Date: 20200122
  Serious: Yes (Hospitalization)
  Sender: FDA-Public Use
  Company Number: CA-NOVOPROD-679353

PATIENT
  Age: 51 Year
  Sex: Female
  Weight: 88 kg

DRUGS (2)
  1. SEMAGLUTIDE B 1.0 MG/ML [Suspect]
     Active Substance: SEMAGLUTIDE
     Indication: NON-ALCOHOLIC STEATOHEPATITIS
     Dosage: 0.1,MG,ONCE PER DAY
     Route: 058
     Dates: start: 20180531, end: 20190807
  2. SEMAGLUTIDE B 1.0 MG/ML [Suspect]
     Active Substance: SEMAGLUTIDE
     Dosage: 0.1 MG, QD
     Route: 058
     Dates: start: 20190811

REACTIONS (2)
  - Cholecystitis [Recovered/Resolved]
  - Cholelithiasis [Recovered/Resolved]

NARRATIVE: CASE EVENT DATE: 20190807
